FAERS Safety Report 6577655-9 (Version None)
Quarter: 2010Q1

REPORT INFORMATION
  Report Type: 
  Country: None (occurrence: None)
  Receive Date: 20100211
  Receipt Date: 20100202
  Transmission Date: 20100710
  Serious: Yes (Other)
  Sender: FDA-Public Use
  Company Number: PHHY2010RU07161

PATIENT
  Age: 79 Year
  Sex: Female

DRUGS (3)
  1. MIACALCIN [Suspect]
     Dosage: UNK
  2. PENTAERITHRITYL TETRANITRATE [Concomitant]
     Dosage: UNK
  3. CARDIOMAGNYL [Concomitant]
     Dosage: UNK

REACTIONS (1)
  - URINARY RETENTION [None]
